FAERS Safety Report 24535517 (Version 2)
Quarter: 2024Q4

REPORT INFORMATION
  Report Type: Spontaneous
  Country: RO (occurrence: RO)
  Receive Date: 20241022
  Receipt Date: 20241025
  Transmission Date: 20250115
  Serious: Yes (Other)
  Sender: MERCK
  Company Number: RO-009507513-2410ROU006057

PATIENT
  Age: 45 Year
  Sex: Female

DRUGS (13)
  1. KEYTRUDA [Suspect]
     Active Substance: PEMBROLIZUMAB
     Indication: Triple negative breast cancer
     Dosage: 200MG; C1D1
     Dates: start: 20240827, end: 20240827
  2. KEYTRUDA [Suspect]
     Active Substance: PEMBROLIZUMAB
     Dosage: 200MG; C2D1
     Dates: start: 20240919, end: 20240919
  3. KEYTRUDA [Suspect]
     Active Substance: PEMBROLIZUMAB
     Dosage: 200MG; C3D1
     Dates: start: 20241010
  4. CARBOPLATIN [Suspect]
     Active Substance: CARBOPLATIN
     Indication: Triple negative breast cancer
     Dosage: AREA UNDER CURVE (AUC) 5; C1D1
     Dates: start: 20240827, end: 20240827
  5. CARBOPLATIN [Suspect]
     Active Substance: CARBOPLATIN
     Dosage: AREA UNDER CURVE (AUC) 5; C2D1
     Dates: start: 20240919, end: 20240919
  6. CARBOPLATIN [Suspect]
     Active Substance: CARBOPLATIN
     Dosage: AREA UNDER CURVE (AUC) 5; C3D1
     Dates: start: 20241010
  7. PACLITAXEL [Suspect]
     Active Substance: PACLITAXEL
     Indication: Triple negative breast cancer
     Dosage: 80MG/M2; C1D1
     Dates: start: 20240827, end: 20240827
  8. PACLITAXEL [Suspect]
     Active Substance: PACLITAXEL
     Dosage: 80MG/M2; C1D8
     Dates: start: 20240905, end: 20240905
  9. PACLITAXEL [Suspect]
     Active Substance: PACLITAXEL
     Dosage: 80MG/M2; C1D15
     Dates: start: 20240912, end: 20240912
  10. PACLITAXEL [Suspect]
     Active Substance: PACLITAXEL
     Dosage: 80MG/M2; C2D1
     Dates: start: 20240919, end: 20240919
  11. PACLITAXEL [Suspect]
     Active Substance: PACLITAXEL
     Dosage: 80MG/M2; C2D8
     Dates: start: 20240926, end: 20240926
  12. PACLITAXEL [Suspect]
     Active Substance: PACLITAXEL
     Dosage: 80MG/M2; C2D15
     Dates: start: 20241004, end: 20241004
  13. PACLITAXEL [Suspect]
     Active Substance: PACLITAXEL
     Dosage: 80MG/M2; C3D1
     Dates: start: 20241010

REACTIONS (11)
  - Neutropenia [Recovered/Resolved]
  - Cell death [Unknown]
  - Neutrophil count increased [Recovered/Resolved]
  - Neutrophil count increased [Recovered/Resolved]
  - Platelet count decreased [Recovered/Resolved]
  - Platelet count decreased [Unknown]
  - Aspartate aminotransferase increased [Recovered/Resolved]
  - Alanine aminotransferase increased [Recovered/Resolved]
  - Alanine aminotransferase increased [Recovered/Resolved]
  - Anaemia [Unknown]
  - Inappropriate schedule of product administration [Unknown]

NARRATIVE: CASE EVENT DATE: 20240827
